FAERS Safety Report 10045423 (Version 1)
Quarter: 2014Q1

REPORT INFORMATION
  Report Type: Spontaneous
  Country: US (occurrence: US)
  Receive Date: 20140328
  Receipt Date: 20140328
  Transmission Date: 20141002
  Serious: Yes (Hospitalization)
  Sender: FDA-Public Use
  Company Number: US-BRISTOL-MYERS SQUIBB COMPANY-20555934

PATIENT
  Sex: Male

DRUGS (1)
  1. ELIQUIS [Suspect]
     Route: 048

REACTIONS (1)
  - Schizophrenia [Unknown]
